FAERS Safety Report 9522287 (Version 1)
Quarter: 2013Q1

REPORT INFORMATION
  Report Type: Spontaneous
  Country: US (occurrence: None)
  Receive Date: 20130305
  Receipt Date: 20130305
  Transmission Date: 20140127
  Serious: Yes (Other)
  Sender: FDA-Public Use
  Company Number: 163-21880-12072627

PATIENT
  Age: 74 Year
  Sex: Female
  Weight: 61.24 kg

DRUGS (8)
  1. REVLIMID (LENALIDOMIDE) (25 MILLIGRAM, CAPSULES) [Suspect]
     Indication: PLASMA CELL MYELOMA
     Dosage: 25 MG, 21 IN 21 D, PO?
     Route: 048
     Dates: start: 20120510
  2. AMBIEN (ZOLPIDEM TARTRETE) (UNKNOWN) [Concomitant]
  3. DEXAMETHASONE (DEXAMETHASONE) (UNKNOWN) [Concomitant]
  4. FISH OIL (FISH OIL) (UNKNOWN) [Concomitant]
  5. MELATONIN (MELATONIN) (UNKNOWN) [Concomitant]
  6. MULTIVITAMINS (MULTIVITAMINS) (UNKNOWN) [Concomitant]
  7. TUMS (CALCIUM CARBONATE) (UNKNOWN) [Concomitant]
  8. VITAMIN D3 (COLECALCIFEROL) (UNKNOWN) [Concomitant]

REACTIONS (3)
  - Diarrhoea [None]
  - Gingival pain [None]
  - Gingival swelling [None]
